FAERS Safety Report 13141383 (Version 1)
Quarter: 2017Q1

REPORT INFORMATION
  Report Type: Spontaneous
  Country: ZA (occurrence: ZA)
  Receive Date: 20170124
  Receipt Date: 20170124
  Transmission Date: 20170428
  Serious: Yes (Hospitalization)
  Sender: FDA-Public Use
  Company Number: ZA-ASTELLAS-2017US002299

PATIENT
  Sex: Female

DRUGS (3)
  1. CELLCEPT [Concomitant]
     Active Substance: MYCOPHENOLATE MOFETIL\MYCOPHENOLATE MOFETIL HYDROCHLORIDE
     Indication: TRANSPLANT
     Dosage: UNK UNK, UNKNOWN FREQ.
     Route: 065
     Dates: start: 201604
  2. PREDNISONE. [Concomitant]
     Active Substance: PREDNISONE
     Indication: TRANSPLANT
     Route: 048
     Dates: start: 201604
  3. PROGRAF [Suspect]
     Active Substance: TACROLIMUS\TACROLIMUS ANHYDROUS
     Indication: TRANSPLANT
     Route: 048
     Dates: start: 201604

REACTIONS (3)
  - Nephrotic syndrome [Not Recovered/Not Resolved]
  - Impaired healing [Not Recovered/Not Resolved]
  - Skin ulcer [Not Recovered/Not Resolved]
